FAERS Safety Report 5795798-4 (Version None)
Quarter: 2008Q3

REPORT INFORMATION
  Report Type: 
  Country: None (occurrence: None)
  Receive Date: 20080701
  Receipt Date: 20080505
  Transmission Date: 20090109
  Serious: No
  Sender: FDA-Public Use
  Company Number: US-BAYER-200822594NA

PATIENT
  Age: 83 Year
  Sex: Female
  Weight: 69 kg

DRUGS (7)
  1. ULTRAVIST 370 [Suspect]
     Indication: DYSPNOEA
     Dosage: TOTAL DAILY DOSE: 80 ML  UNIT DOSE: 500 ML
     Route: 042
     Dates: start: 20080505, end: 20080505
  2. METOPROLOL [Concomitant]
  3. HYDROCHLOROTHIAZIDE [Concomitant]
  4. COUMADIN [Concomitant]
  5. LEVOTHYROXINE SODIUM [Concomitant]
  6. SIMVASTATIN [Concomitant]
  7. OMEPRAZOLE [Concomitant]

REACTIONS (1)
  - PRURITUS GENERALISED [None]
